FAERS Safety Report 8573796 (Version 6)
Quarter: 2013Q4

REPORT INFORMATION
  Report Type: Report from Study
  Country: BR (occurrence: BR)
  Receive Date: 20120522
  Receipt Date: 20131206
  Transmission Date: 20140711
  Serious: Yes (Hospitalization, Other)
  Sender: FDA-Public Use
  Company Number: BR-ROCHE-795643

PATIENT
  Sex: Female
  Weight: 64 kg

DRUGS (16)
  1. MABTHERA [Suspect]
     Indication: RHEUMATOID ARTHRITIS
     Route: 042
     Dates: start: 200803, end: 201304
  2. MABTHERA [Suspect]
     Route: 042
  3. MABTHERA [Suspect]
     Dosage: 3 RD CYCLE
     Route: 042
  4. MABTHERA [Suspect]
     Dosage: 4 TH CYCLE
     Route: 042
     Dates: start: 20120417, end: 20120504
  5. MABTHERA [Suspect]
     Route: 042
  6. ATENOLOL [Concomitant]
     Indication: HYPERTENSION
     Route: 065
  7. ENALAPRIL [Concomitant]
     Indication: HYPERTENSION
     Route: 065
  8. AMITRIPTYLINE [Concomitant]
     Route: 065
  9. SIMVASTATIN [Concomitant]
     Route: 065
  10. METHOTREXATE [Concomitant]
     Indication: RHEUMATOID ARTHRITIS
     Route: 065
  11. CYMBALTA [Concomitant]
  12. OMEPRAZOLE [Concomitant]
     Route: 065
  13. KETOPROFEN [Concomitant]
  14. CEBRALAT [Concomitant]
     Indication: PRODUCT USED FOR UNKNOWN INDICATION
  15. FOLIC ACID [Concomitant]
     Indication: RHEUMATOID ARTHRITIS
  16. FLUOXETINE HYDROCHLORIDE [Concomitant]
     Indication: ANXIETY

REACTIONS (40)
  - Tendon disorder [Not Recovered/Not Resolved]
  - Tendon disorder [Not Recovered/Not Resolved]
  - Tendonitis [Not Recovered/Not Resolved]
  - Hypoaesthesia [Unknown]
  - Tooth disorder [Unknown]
  - Migraine [Unknown]
  - Sensory disturbance [Unknown]
  - Activities of daily living impaired [Not Recovered/Not Resolved]
  - Brain oedema [Not Recovered/Not Resolved]
  - Hepatic neoplasm [Unknown]
  - Spinal cord compression [Not Recovered/Not Resolved]
  - Pulmonary hypertension [Unknown]
  - Central nervous system lesion [Unknown]
  - Spinal disorder [Unknown]
  - Pulmonary oedema [Recovered/Resolved]
  - Dyspnoea [Recovered/Resolved]
  - Tooth disorder [Unknown]
  - Urinary tract infection [Unknown]
  - Infusion related reaction [Recovered/Resolved]
  - Pain in extremity [Not Recovered/Not Resolved]
  - Gait disturbance [Not Recovered/Not Resolved]
  - Blood pressure fluctuation [Not Recovered/Not Resolved]
  - Pain [Not Recovered/Not Resolved]
  - Tooth fracture [Recovering/Resolving]
  - Diarrhoea [Unknown]
  - Vomiting [Unknown]
  - Local swelling [Unknown]
  - Erythema [Unknown]
  - Muscle spasms [Unknown]
  - Headache [Unknown]
  - Dizziness [Unknown]
  - Fall [Recovered/Resolved]
  - Blood cholesterol increased [Not Recovered/Not Resolved]
  - Lung infection [Unknown]
  - Renal disorder [Unknown]
  - Hypertension [Unknown]
  - Blood cholesterol abnormal [Unknown]
  - Tremor [Unknown]
  - Chills [Unknown]
  - Tachycardia [Unknown]
